FAERS Safety Report 13065296 (Version 1)
Quarter: 2016Q4

REPORT INFORMATION
  Report Type: Report from Study
  Country: US (occurrence: US)
  Receive Date: 20161227
  Receipt Date: 20161227
  Transmission Date: 20170207
  Serious: Yes (Other)
  Sender: FDA-Public Use
  Company Number: US-AMGEN-USASL2016179805

PATIENT
  Age: 64 Year
  Sex: Female

DRUGS (3)
  1. PROLIA [Suspect]
     Active Substance: DENOSUMAB
     Indication: OSTEOPOROSIS POSTMENOPAUSAL
     Dosage: 60 MG, UNK
     Route: 065
  2. LITHIUM. [Concomitant]
     Active Substance: LITHIUM
     Dosage: UNK UNK, QD
  3. DEPAKOTE [Concomitant]
     Active Substance: DIVALPROEX SODIUM

REACTIONS (10)
  - Inflammation [Recovering/Resolving]
  - Fractured coccyx [Recovering/Resolving]
  - Pelvic fracture [Recovering/Resolving]
  - Pain [Recovering/Resolving]
  - Arthropathy [Recovering/Resolving]
  - Lumbar vertebral fracture [Recovering/Resolving]
  - Spinal fracture [Recovering/Resolving]
  - Dizziness [Recovering/Resolving]
  - Bronchitis [Recovering/Resolving]
  - Fall [Unknown]

NARRATIVE: CASE EVENT DATE: 2015
